FAERS Safety Report 21834655 (Version 1)
Quarter: 2023Q1

REPORT INFORMATION
  Report Type: Spontaneous
  Country: US (occurrence: None)
  Receive Date: 20230108
  Receipt Date: 20230108
  Transmission Date: 20230417
  Serious: No
  Sender: FDA-Public Use
  Company Number: US-ROCHE-3193874

PATIENT
  Sex: Female

DRUGS (1)
  1. ENSPRYNG [Suspect]
     Active Substance: SATRALIZUMAB-MWGE
     Indication: Neuromyelitis optica spectrum disorder
     Dosage: STRENGTH: 120 MG/ML
     Route: 058
     Dates: start: 202109

REACTIONS (3)
  - Arthralgia [Unknown]
  - Muscular weakness [Unknown]
  - Maternal exposure during pregnancy [Unknown]
